FAERS Safety Report 18643363 (Version 1)
Quarter: 2020Q4

REPORT INFORMATION
  Report Type: Spontaneous
  Country: GR (occurrence: GR)
  Receive Date: 20201221
  Receipt Date: 20201221
  Transmission Date: 20210114
  Serious: Yes (Life-Threatening, Other)
  Sender: FDA-Public Use
  Company Number: GR-ASTRAZENECA-2020SF68811

PATIENT
  Age: 70 Year
  Sex: Male

DRUGS (4)
  1. TILDIEM [Concomitant]
     Active Substance: DILTIAZEM HYDROCHLORIDE
  2. FORXIGA [Suspect]
     Active Substance: DAPAGLIFLOZIN
     Indication: TYPE 2 DIABETES MELLITUS
     Route: 048
  3. LASIX [Concomitant]
     Active Substance: FUROSEMIDE
  4. CLEXANE [Concomitant]
     Active Substance: ENOXAPARIN SODIUM

REACTIONS (1)
  - Diabetic ketoacidosis [Recovered/Resolved]
